FAERS Safety Report 4358114-0 (Version None)
Quarter: 2004Q2

REPORT INFORMATION
  Report Type: 
  Country: None (occurrence: None)
  Receive Date: 20040510
  Receipt Date: 20040504
  Transmission Date: 20050107
  Serious: Yes (Death, Hospitalization)
  Sender: FDA-Public Use
  Company Number: 2004UW06498

PATIENT
  Age: 70 Year
  Sex: Male
  Weight: 83 kg

DRUGS (18)
  1. DIPRIVAN [Suspect]
     Indication: SEDATION
     Dosage: VARYING DOSAGE
     Dates: start: 20040319, end: 20040402
  2. NYSTATIN [Concomitant]
  3. XOPENEX [Concomitant]
  4. PROTONIX [Concomitant]
  5. CEFEPIME [Concomitant]
  6. METRONIDAZOLE [Concomitant]
  7. TPN [Concomitant]
  8. LASIX [Concomitant]
  9. NITROGLYCERN [Concomitant]
  10. MORPHINE [Concomitant]
  11. METOPROLOL [Concomitant]
  12. NOVOLOG [Concomitant]
  13. GLUCAGON [Concomitant]
  14. FLUCONAZOLE [Concomitant]
  15. ESMOLOL [Concomitant]
  16. UNASYN [Concomitant]
  17. HEPARIN [Concomitant]
  18. PROMETHAZINE [Concomitant]

REACTIONS (3)
  - BLOOD POTASSIUM INCREASED [None]
  - HEPATIC FAILURE [None]
  - LIVER FUNCTION TEST ABNORMAL [None]
